FAERS Safety Report 10642287 (Version 1)
Quarter: 2014Q4

REPORT INFORMATION
  Report Type: Spontaneous
  Country: US (occurrence: None)
  Receive Date: 20141208
  Receipt Date: 20141208
  Transmission Date: 20150529
  Serious: Yes (Life-Threatening, Other)
  Sender: FDA-Public Use
  Company Number: None

PATIENT
  Age: 82 Year
  Sex: Female
  Weight: 59.9 kg

DRUGS (6)
  1. POTASSIUM CHLORIDE. [Concomitant]
     Active Substance: POTASSIUM CHLORIDE
  2. MIDAZOLAM (VERSED) [Concomitant]
  3. PHENYTOIN (DILANTIN) ER [Concomitant]
     Active Substance: PHENYTOIN
  4. FENTANYL (SUBLIMAZE) INJECTION [Concomitant]
  5. PROPOFOL. [Suspect]
     Active Substance: PROPOFOL
     Indication: SEDATION
     Dosage: 2590 MCG, CONTINUOUS INFUSION
     Route: 042
     Dates: start: 20141126, end: 20141202
  6. LEVETIRACETAMM (KEPPRA) [Concomitant]

REACTIONS (1)
  - Swollen tongue [None]

NARRATIVE: CASE EVENT DATE: 20141126
